FAERS Safety Report 5939493-7 (Version None)
Quarter: 2008Q4

REPORT INFORMATION
  Report Type: 
  Country: None (occurrence: None)
  Receive Date: 20081029
  Receipt Date: 20081021
  Transmission Date: 20090506
  Serious: Yes (Death, Other)
  Sender: FDA-Public Use
  Company Number: 2008US002725

PATIENT
  Age: 32 Year
  Sex: Female

DRUGS (14)
  1. AMBISOME [Suspect]
     Indication: BRONCHOPULMONARY ASPERGILLOSIS
     Dosage: 150 MG, UID/QD, IV NOS
     Route: 042
     Dates: start: 20070902, end: 20070903
  2. FAMOTIDINE [Suspect]
     Indication: DRUG USE FOR UNKNOWN INDICATION
     Dosage: 20 MG, UID/QD, ORAL
     Route: 048
     Dates: start: 20070903
  3. CIPROFLOXACIN HCL [Suspect]
     Indication: DRUG USE FOR UNKNOWN INDICATION
     Dosage: 300 MG, UID/QD, IV NOS
     Route: 042
     Dates: start: 20070831, end: 20070903
  4. VANCOMYCIN HYDROCHLORIDE [Suspect]
     Indication: DRUG USE FOR UNKNOWN INDICATION
     Dosage: 1.5 G, UID/QD, IV NOS
     Route: 042
     Dates: start: 20070831, end: 20070903
  5. LENDORM [Concomitant]
  6. BIOFERMIN R (STREPTOCOCCUS FAECALIS) [Concomitant]
  7. SULFAMETHOXAZOLE AND TRIMETHOPRIM [Concomitant]
  8. ITRACONAZOLE [Concomitant]
  9. MEDICON (DEXTROMETHORPHAN HYDROBROMIDE) [Concomitant]
  10. TRANSAMIN (TRANEXAMIC ACID) [Concomitant]
  11. ADONA (CARBAZOCHROME SODIUM SULFONATE) [Concomitant]
  12. POTASSIUM CHLORIDE [Concomitant]
  13. FOY (GABEXATE MESILATE) [Concomitant]
  14. MORPHINE [Concomitant]

REACTIONS (9)
  - BLOOD BILIRUBIN INCREASED [None]
  - BLOOD UREA DECREASED [None]
  - HAEMATOCRIT DECREASED [None]
  - HAEMOGLOBIN DECREASED [None]
  - HAEMORRHAGE [None]
  - LIVER DISORDER [None]
  - PLATELET COUNT DECREASED [None]
  - RED BLOOD CELL COUNT DECREASED [None]
  - WHITE BLOOD CELL COUNT DECREASED [None]
